FAERS Safety Report 24554844 (Version 2)
Quarter: 2025Q2

REPORT INFORMATION
  Report Type: Report from Study
  Country: BE (occurrence: BE)
  Receive Date: 20241028
  Receipt Date: 20250512
  Transmission Date: 20250717
  Serious: Yes (Death, Other)
  Sender: MYLAN
  Company Number: BE-CHEPLA-2024013041

PATIENT
  Age: 57 Year

DRUGS (36)
  1. TACROLIMUS [Suspect]
     Active Substance: TACROLIMUS
     Indication: Immunosuppressant drug therapy
  2. TACROLIMUS [Suspect]
     Active Substance: TACROLIMUS
     Route: 065
  3. TACROLIMUS [Suspect]
     Active Substance: TACROLIMUS
     Route: 065
  4. TACROLIMUS [Suspect]
     Active Substance: TACROLIMUS
  5. MYCOPHENOLATE MOFETIL [Suspect]
     Active Substance: MYCOPHENOLATE MOFETIL
     Indication: Immunosuppressant drug therapy
  6. MYCOPHENOLATE MOFETIL [Suspect]
     Active Substance: MYCOPHENOLATE MOFETIL
  7. MYCOPHENOLATE MOFETIL [Suspect]
     Active Substance: MYCOPHENOLATE MOFETIL
     Route: 065
  8. MYCOPHENOLATE MOFETIL [Suspect]
     Active Substance: MYCOPHENOLATE MOFETIL
     Route: 065
  9. MYCOPHENOLATE MOFETIL [Suspect]
     Active Substance: MYCOPHENOLATE MOFETIL
  10. MYCOPHENOLATE MOFETIL [Suspect]
     Active Substance: MYCOPHENOLATE MOFETIL
  11. MYCOPHENOLATE MOFETIL [Suspect]
     Active Substance: MYCOPHENOLATE MOFETIL
     Route: 065
  12. MYCOPHENOLATE MOFETIL [Suspect]
     Active Substance: MYCOPHENOLATE MOFETIL
     Route: 065
  13. GANCICLOVIR [Suspect]
     Active Substance: GANCICLOVIR
     Indication: Antiviral prophylaxis
  14. GANCICLOVIR [Suspect]
     Active Substance: GANCICLOVIR
     Route: 065
  15. GANCICLOVIR [Suspect]
     Active Substance: GANCICLOVIR
     Route: 065
  16. GANCICLOVIR [Suspect]
     Active Substance: GANCICLOVIR
  17. VALGANCICLOVIR [Suspect]
     Active Substance: VALGANCICLOVIR
     Indication: Antiviral prophylaxis
  18. VALGANCICLOVIR [Suspect]
     Active Substance: VALGANCICLOVIR
     Route: 065
  19. VALGANCICLOVIR [Suspect]
     Active Substance: VALGANCICLOVIR
     Route: 065
  20. VALGANCICLOVIR [Suspect]
     Active Substance: VALGANCICLOVIR
  21. BASILIXIMAB [Suspect]
     Active Substance: BASILIXIMAB
     Indication: Product used for unknown indication
  22. BASILIXIMAB [Suspect]
     Active Substance: BASILIXIMAB
  23. BASILIXIMAB [Suspect]
     Active Substance: BASILIXIMAB
     Route: 065
  24. BASILIXIMAB [Suspect]
     Active Substance: BASILIXIMAB
     Route: 065
  25. BASILIXIMAB [Suspect]
     Active Substance: BASILIXIMAB
  26. BASILIXIMAB [Suspect]
     Active Substance: BASILIXIMAB
  27. BASILIXIMAB [Suspect]
     Active Substance: BASILIXIMAB
     Route: 065
  28. BASILIXIMAB [Suspect]
     Active Substance: BASILIXIMAB
     Route: 065
  29. METHYLPREDNISOLONE [Suspect]
     Active Substance: METHYLPREDNISOLONE
     Indication: Immunosuppressant drug therapy
     Dosage: 4 MILLIGRAM, QD
  30. METHYLPREDNISOLONE [Suspect]
     Active Substance: METHYLPREDNISOLONE
     Dosage: 4 MILLIGRAM, QD
  31. METHYLPREDNISOLONE [Suspect]
     Active Substance: METHYLPREDNISOLONE
     Dosage: 4 MILLIGRAM, QD
     Route: 065
  32. METHYLPREDNISOLONE [Suspect]
     Active Substance: METHYLPREDNISOLONE
     Dosage: 4 MILLIGRAM, QD
     Route: 065
  33. METHYLPREDNISOLONE [Suspect]
     Active Substance: METHYLPREDNISOLONE
  34. METHYLPREDNISOLONE [Suspect]
     Active Substance: METHYLPREDNISOLONE
  35. METHYLPREDNISOLONE [Suspect]
     Active Substance: METHYLPREDNISOLONE
     Route: 065
  36. METHYLPREDNISOLONE [Suspect]
     Active Substance: METHYLPREDNISOLONE
     Route: 065

REACTIONS (9)
  - Respiratory failure [Fatal]
  - Lung disorder [Fatal]
  - Drug ineffective [Unknown]
  - Pneumonitis [Unknown]
  - Pancytopenia [Unknown]
  - Hepatitis [Unknown]
  - Cytomegalovirus infection [Unknown]
  - Aspergillus infection [Unknown]
  - Influenza [Unknown]
